FAERS Safety Report 9260690 (Version 5)
Quarter: 2013Q2

REPORT INFORMATION
  Report Type: Report from Study
  Country: IT (occurrence: IT)
  Receive Date: 20130429
  Receipt Date: 20130613
  Transmission Date: 20140414
  Serious: Yes (Hospitalization)
  Sender: FDA-Public Use
  Company Number: IT-ROCHE-1219059

PATIENT
  Age: 55 Year
  Sex: Female

DRUGS (2)
  1. AVASTIN [Suspect]
     Indication: BREAST CANCER
     Dosage: LAST DOSE ON 25/JUL/2007. (2 CYCLE WERE ADMINSTERED)
     Route: 065
  2. DOCETAXEL [Suspect]
     Indication: BREAST CANCER
     Route: 065

REACTIONS (5)
  - Sepsis [Recovered/Resolved]
  - Mucosal inflammation [Unknown]
  - Mucosal inflammation [Unknown]
  - Haematotoxicity [Unknown]
  - White blood cell count decreased [Unknown]
